FAERS Safety Report 4634897-7 (Version None)
Quarter: 2005Q2

REPORT INFORMATION
  Report Type: 
  Country: None (occurrence: None)
  Receive Date: 20050414
  Receipt Date: 20050404
  Transmission Date: 20051028
  Serious: Yes (Life-Threatening, Hospitalization)
  Sender: FDA-Public Use
  Company Number: 200513073GDDC

PATIENT
  Age: 64 Year
  Sex: Male
  Weight: 90 kg

DRUGS (7)
  1. FEXOFENADINE HCL [Suspect]
     Indication: PRURITUS
     Route: 048
     Dates: start: 20050307, end: 20050322
  2. BISOPROLOL FUMARATE [Concomitant]
     Indication: CARDIAC FAILURE CONGESTIVE
     Route: 048
     Dates: start: 19990101
  3. LISINOPRIL [Concomitant]
     Indication: CARDIAC FAILURE CONGESTIVE
     Route: 048
     Dates: start: 19990101
  4. FRUSEMIDE [Concomitant]
     Indication: CARDIAC FAILURE CONGESTIVE
     Route: 048
     Dates: start: 19990101
  5. PRAVASTATIN [Concomitant]
     Indication: CARDIAC FAILURE CONGESTIVE
     Route: 048
     Dates: start: 19990101
  6. AMIODARONE [Concomitant]
     Route: 048
     Dates: start: 20050317
  7. ZOTON [Concomitant]
     Route: 048

REACTIONS (1)
  - VENTRICULAR TACHYCARDIA [None]
